FAERS Safety Report 10524814 (Version 1)
Quarter: 2014Q4

REPORT INFORMATION
  Report Type: Spontaneous
  Country: US (occurrence: US)
  Receive Date: 20141017
  Receipt Date: 20141017
  Transmission Date: 20150528
  Serious: No
  Sender: FDA-Public Use
  Company Number: US-009507513-1410USA006959

PATIENT
  Sex: Female

DRUGS (2)
  1. DR. SCHOLL^S FOR HER RUB RELIEF STICK [Suspect]
     Active Substance: ALLANTOIN
     Indication: PRODUCT USED FOR UNKNOWN INDICATION
     Dosage: UNK, UNKNOWN
     Route: 061
  2. DR. SCHOLL^S FOR HER RUB RELIEF STICK [Suspect]
     Active Substance: ALLANTOIN
     Indication: BLISTER

REACTIONS (1)
  - Therapeutic product ineffective [Unknown]
